FAERS Safety Report 15765276 (Version 1)
Quarter: 2018Q4

REPORT INFORMATION
  Report Type: Spontaneous
  Country: US (occurrence: US)
  Receive Date: 20181227
  Receipt Date: 20181227
  Transmission Date: 20190205
  Serious: Yes (Other)
  Sender: FDA-Public Use
  Company Number: US-SA-2018SA390481

PATIENT
  Age: 77 Year
  Sex: Male

DRUGS (2)
  1. LANTUS [Suspect]
     Active Substance: INSULIN GLARGINE
     Indication: TYPE 2 DIABETES MELLITUS
     Dosage: 44 U, QD
  2. HUMALOG [Concomitant]
     Active Substance: INSULIN LISPRO
     Dosage: UNK

REACTIONS (4)
  - Blindness [Not Recovered/Not Resolved]
  - Incorrect dose administered [Unknown]
  - Diplopia [Not Recovered/Not Resolved]
  - Chronic obstructive pulmonary disease [Unknown]
